FAERS Safety Report 15477471 (Version 1)
Quarter: 2018Q4

REPORT INFORMATION
  Report Type: Spontaneous
  Country: VN (occurrence: VN)
  Receive Date: 20181009
  Receipt Date: 20181009
  Transmission Date: 20190205
  Serious: Yes (Life-Threatening)
  Sender: FDA-Public Use
  Company Number: VN-B. BRAUN MEDICAL INC.-2055812

PATIENT
  Age: 60 Year
  Sex: Female

DRUGS (1)
  1. SODIUM CHLORIDE INJECTIONS USP 0264-7800-00 0264-7800-10 [Suspect]
     Active Substance: SODIUM CHLORIDE
     Indication: SURGICAL PRECONDITIONING
     Route: 041
     Dates: start: 20180921

REACTIONS (2)
  - Cardiogenic shock [Not Recovered/Not Resolved]
  - Coma [Not Recovered/Not Resolved]

NARRATIVE: CASE EVENT DATE: 20180921
